FAERS Safety Report 17766482 (Version 1)
Quarter: 2020Q2

REPORT INFORMATION
  Report Type: Spontaneous
  Country: FR (occurrence: FR)
  Receive Date: 20200511
  Receipt Date: 20200511
  Transmission Date: 20200714
  Serious: Yes (Death)
  Sender: FDA-Public Use
  Company Number: FR-PFIZER INC-2020185558

PATIENT
  Sex: Male
  Weight: 3.1 kg

DRUGS (1)
  1. SERTRALINE HCL [Suspect]
     Active Substance: SERTRALINE HYDROCHLORIDE
     Indication: DEPRESSION
     Dosage: 50 MG
     Route: 064
     Dates: start: 201810, end: 20190605

REACTIONS (1)
  - Neonatal anoxia [Fatal]

NARRATIVE: CASE EVENT DATE: 20190605
